FAERS Safety Report 5096157-2 (Version None)
Quarter: 2006Q3

REPORT INFORMATION
  Report Type: 
  Country: None (occurrence: None)
  Receive Date: 20060905
  Receipt Date: 20060605
  Transmission Date: 20061208
  Serious: Yes (Life-Threatening, Hospitalization)
  Sender: FDA-Public Use
  Company Number: AU-ROCHE-450511

PATIENT
  Age: 52 Year
  Sex: Female
  Weight: 50 kg

DRUGS (13)
  1. CAPECITABINE [Suspect]
     Dosage: GIVEN ON DAYS 1-14 OF 21 DAY CYCLE.
     Route: 048
     Dates: start: 20050727, end: 20060601
  2. AVASTIN [Suspect]
     Route: 042
     Dates: start: 20050727, end: 20060601
  3. MITOMYCIN [Suspect]
     Dosage: 4 DOSES GIVEN AS PER PROTOCOL. REPORTED THAT THE DOSE WAS REDUCED DUE TO THROMBOCYTOPENIA.
     Route: 065
     Dates: start: 20050727, end: 20060601
  4. ACETAMINOPHEN W/ CODEINE [Concomitant]
     Route: 048
     Dates: start: 20060601
  5. ESOMEPRAZOLE MAGNESIUM [Concomitant]
     Route: 048
  6. 1 CONCOMITANT DRUG [Concomitant]
     Route: 048
     Dates: start: 20060615
  7. GLYCERYL TRINITRATE [Concomitant]
     Route: 061
     Dates: start: 20060615
  8. LACTULOSE [Concomitant]
     Route: 048
  9. IRBESARTAN [Concomitant]
     Route: 048
     Dates: start: 20060615
  10. PREDNISOLONE [Concomitant]
     Route: 048
     Dates: start: 20060615
  11. ATENOLOL [Concomitant]
     Route: 048
     Dates: start: 20060615
  12. FELODIPINE [Concomitant]
     Route: 048
     Dates: start: 20060615
  13. FLUSEMIDE [Concomitant]
     Route: 048
     Dates: start: 20060615

REACTIONS (8)
  - ACUTE RESPIRATORY FAILURE [None]
  - HYPERTENSION [None]
  - MYOCARDIAL INFARCTION [None]
  - NEPHROTIC SYNDROME [None]
  - NICOTINE DEPENDENCE [None]
  - PULMONARY HAEMORRHAGE [None]
  - THROMBOCYTOPENIA [None]
  - VAGINAL CANDIDIASIS [None]
